FAERS Safety Report 9222295 (Version 1)
Quarter: 2013Q2

REPORT INFORMATION
  Report Type: Spontaneous
  Country: CN (occurrence: None)
  Receive Date: 20130408
  Receipt Date: 20130408
  Transmission Date: 20140414
  Serious: Yes (Death, Hospitalization, Other)
  Sender: FDA-Public Use
  Company Number: 2013P1004207

PATIENT
  Age: 13 Year
  Sex: Female

DRUGS (3)
  1. RIFAMPIN [Suspect]
     Indication: MENINGITIS TUBERCULOUS
  2. ISONIAZID [Suspect]
     Indication: MENINGITIS TUBERCULOUS
     Dosage: 3 MONTH
  3. PYRAZINAMIDE [Suspect]
     Indication: MENINGITIS TUBERCULOUS
     Dosage: 3 MONTH

REACTIONS (6)
  - Respiratory disorder [None]
  - Heart rate decreased [None]
  - Procedural complication [None]
  - Apnoea [None]
  - Cardiac arrest [None]
  - Tuberculoma of central nervous system [None]
